FAERS Safety Report 5206335-7 (Version None)
Quarter: 2006Q4

REPORT INFORMATION
  Report Type: 
  Country: None (occurrence: None)
  Receive Date: 20061031
  Receipt Date: 20060725
  Transmission Date: 20070319
  Serious: No
  Sender: FDA-Public Use
  Company Number: 2005-BP-20337BP

PATIENT
  Age: 45 Year
  Sex: Male

DRUGS (1)
  1. APTIVUS/RITONAVIR CAPSULES [Suspect]
     Indication: HIV INFECTION
     Dosage: SEE TEXT, TPV/RTV 250/100 MG), PO
     Route: 048

REACTIONS (1)
  - DRUG INEFFECTIVE [None]
